FAERS Safety Report 23752639 (Version 1)
Quarter: 2024Q2

REPORT INFORMATION
  Report Type: Spontaneous
  Country: US (occurrence: US)
  Receive Date: 20240417
  Receipt Date: 20240417
  Transmission Date: 20240716
  Serious: No
  Sender: FDA-Public Use
  Company Number: US-MYLANLABS-2024M1030317

PATIENT

DRUGS (2)
  1. LATANOPROST [Suspect]
     Active Substance: LATANOPROST
     Indication: Product used for unknown indication
     Dosage: UNK
     Route: 065
  2. TYLENOL [Concomitant]
     Active Substance: ACETAMINOPHEN
     Indication: Back pain
     Dosage: 650 MILLIGRAM
     Route: 065

REACTIONS (10)
  - Decreased activity [Unknown]
  - Impaired driving ability [Unknown]
  - Suspected product contamination [Unknown]
  - Lacrimation increased [Unknown]
  - Dysgraphia [Unknown]
  - Asthenopia [Unknown]
  - Eye pain [Unknown]
  - Eye pruritus [Unknown]
  - Headache [Unknown]
  - Ocular hyperaemia [Unknown]
